FAERS Safety Report 15463753 (Version 1)
Quarter: 2018Q4

REPORT INFORMATION
  Report Type: Spontaneous
  Country: PL (occurrence: PL)
  Receive Date: 20181004
  Receipt Date: 20181004
  Transmission Date: 20190204
  Serious: Yes (Other)
  Sender: FDA-Public Use
  Company Number: PL-009507513-1809POL012880

PATIENT
  Sex: Female

DRUGS (1)
  1. TEMOZOLOMIDE. [Suspect]
     Active Substance: TEMOZOLOMIDE
     Indication: PITUITARY TUMOUR
     Dosage: 200 MG, O.D. FOR FIVE DAYS ONCE A MONTH

REACTIONS (2)
  - Adrenal insufficiency [Unknown]
  - Cushing^s syndrome [Unknown]
